FAERS Safety Report 11043457 (Version 1)
Quarter: 2015Q2

REPORT INFORMATION
  Report Type: Spontaneous
  Country: US (occurrence: None)
  Receive Date: 20150416
  Receipt Date: 20150416
  Transmission Date: 20150821
  Serious: Yes (Other)
  Sender: FDA-Public Use
  Company Number: None

PATIENT
  Age: 2 Year
  Sex: Male
  Weight: 10.89 kg

DRUGS (1)
  1. AMOXICILLIN. [Suspect]
     Active Substance: AMOXICILLIN
     Indication: EAR INFECTION
     Dosage: TAKEN BY MOUTH
     Route: 048
     Dates: start: 20150407, end: 20150415

REACTIONS (1)
  - Rash generalised [None]

NARRATIVE: CASE EVENT DATE: 20150415
